FAERS Safety Report 8966185 (Version 2)
Quarter: 2013Q2

REPORT INFORMATION
  Report Type: Spontaneous
  Country: FR (occurrence: FR)
  Receive Date: 20121217
  Receipt Date: 20130416
  Transmission Date: 20140414
  Serious: Yes (Hospitalization, Other)
  Sender: FDA-Public Use
  Company Number: FR-PFIZER INC-2012311613

PATIENT
  Age: 70 Year
  Sex: Male

DRUGS (10)
  1. LYRICA [Suspect]
     Indication: LUNG SQUAMOUS CELL CARCINOMA METASTATIC
     Dosage: 150 MG, 1X/DAY
     Route: 048
     Dates: start: 201206, end: 20121018
  2. TAHOR [Suspect]
     Indication: HYPERCHOLESTEROLAEMIA
     Dosage: 20 MG, 1X/DAY
     Route: 048
     Dates: end: 20121018
  3. AMLOR [Suspect]
     Indication: HYPERTENSION
     Dosage: 10 MG, 1X/DAY
     Route: 048
     Dates: end: 20121018
  4. ISKEDYL [Suspect]
     Dosage: 1 DF, 1X/DAY
     Route: 048
     Dates: end: 20121018
  5. EUPANTOL [Suspect]
     Indication: GASTROOESOPHAGEAL REFLUX DISEASE
     Dosage: 40 MG, 1X/DAY
     Route: 048
     Dates: end: 20121018
  6. MICARDISPLUS [Suspect]
     Indication: HYPERTENSION
     Dosage: 1 DF, 1X/DAY
     Route: 048
     Dates: end: 20121018
  7. PROGRAF [Concomitant]
     Indication: PROPHYLAXIS AGAINST TRANSPLANT REJECTION
     Dosage: 3 MG, 1X/DAY
     Route: 048
  8. CELLCEPT [Concomitant]
     Indication: PROPHYLAXIS AGAINST TRANSPLANT REJECTION
     Dosage: 1 G, 1X/DAY
     Route: 048
  9. CORTANCYL [Concomitant]
     Indication: PROPHYLAXIS AGAINST TRANSPLANT REJECTION
     Dosage: 1 DF, 1X/DAY
  10. DIAMICRON [Concomitant]
     Indication: TYPE 2 DIABETES MELLITUS
     Dosage: 120 MG, 1X/DAY

REACTIONS (2)
  - Hepatocellular injury [Recovered/Resolved]
  - Cholestasis [Recovered/Resolved]
